FAERS Safety Report 9251647 (Version 1)
Quarter: 2013Q2

REPORT INFORMATION
  Report Type: Report from Study
  Country: US (occurrence: US)
  Receive Date: 20130424
  Receipt Date: 20130424
  Transmission Date: 20140414
  Serious: Yes (Other)
  Sender: FDA-Public Use
  Company Number: US-ROCHE-1215076

PATIENT
  Sex: 0

DRUGS (8)
  1. RITUXIMAB [Suspect]
     Indication: MANTLE CELL LYMPHOMA
     Route: 065
  2. CYCLOPHOSPHAMIDE [Suspect]
     Indication: MANTLE CELL LYMPHOMA
     Route: 065
  3. DOXORUBICIN [Suspect]
     Indication: MANTLE CELL LYMPHOMA
     Route: 065
  4. VINCRISTINE [Suspect]
     Indication: MANTLE CELL LYMPHOMA
     Route: 065
  5. PREDNISONE [Suspect]
     Indication: MANTLE CELL LYMPHOMA
     Route: 065
  6. DEXAMETHASONE [Suspect]
     Indication: MANTLE CELL LYMPHOMA
     Route: 065
  7. CYTARABINE [Suspect]
     Indication: MANTLE CELL LYMPHOMA
     Route: 065
  8. CISPLATIN [Suspect]
     Indication: MANTLE CELL LYMPHOMA
     Route: 065

REACTIONS (1)
  - Bone marrow failure [Unknown]
